FAERS Safety Report 5690321-7 (Version None)
Quarter: 2008Q2

REPORT INFORMATION
  Report Type: 
  Country: None (occurrence: None)
  Receive Date: 20080401
  Receipt Date: 20011120
  Transmission Date: 20081010
  Serious: Yes (Death)
  Sender: FDA-Public Use
  Company Number: US-ROCHE-302449

PATIENT
  Age: 92 Year
  Sex: Female

DRUGS (10)
  1. ROCEPHIN [Suspect]
     Indication: PNEUMONIA
     Route: 065
     Dates: start: 20010806, end: 20010817
  2. WARFARIN SODIUM [Concomitant]
  3. PREDNISONE TAB [Concomitant]
  4. TRAZODONE HCL [Concomitant]
     Route: 048
  5. NEURONTIN [Concomitant]
     Route: 048
  6. ALBUTEROL [Concomitant]
     Route: 048
  7. FURSEMIDE [Concomitant]
     Route: 048
  8. ZOSYN [Concomitant]
     Indication: PNEUMONIA
     Dates: start: 20010817, end: 20010825
  9. CEFTIN [Concomitant]
  10. ACETAMINOPHEN [Concomitant]
     Route: 048

REACTIONS (1)
  - DEATH [None]
